FAERS Safety Report 7331122-3 (Version None)
Quarter: 2011Q1

REPORT INFORMATION
  Report Type: 
  Country: None (occurrence: None)
  Receive Date: 20110228
  Receipt Date: 20110228
  Transmission Date: 20110831
  Serious: No
  Sender: FDA-Public Use
  Company Number: None

PATIENT
  Age: 42 Year
  Sex: Male
  Weight: 71.2147 kg

DRUGS (1)
  1. CIPROFLOXACIN [Suspect]
     Indication: DIARRHOEA INFECTIOUS
     Dosage: 1 TABLET, TWICE DAILY ORAL 6 TABLETS TOTAL
     Route: 048
     Dates: start: 20110104, end: 20110106

REACTIONS (2)
  - TENDON RUPTURE [None]
  - TINNITUS [None]
